FAERS Safety Report 7674339-0 (Version None)
Quarter: 2011Q3

REPORT INFORMATION
  Report Type: 
  Country: None (occurrence: None)
  Receive Date: 20110810
  Receipt Date: 20080908
  Transmission Date: 20111222
  Serious: Yes (Other)
  Sender: FDA-Public Use
  Company Number: US-BAYER-200828965NA

PATIENT
  Age: 46 Year
  Sex: Female
  Weight: 70.295 kg

DRUGS (35)
  1. MAGNEVIST [Suspect]
     Dosage: 20 ML, ONCE
     Route: 042
     Dates: start: 20011210, end: 20011210
  2. MAGNEVIST [Suspect]
     Dosage: 20 ML, ONCE
     Dates: start: 20031205, end: 20031205
  3. MAGNEVIST [Suspect]
     Dosage: 16 ML, ONCE
     Route: 042
     Dates: start: 20040614, end: 20040614
  4. MAGNEVIST [Suspect]
     Dosage: 15 ML, UNK
     Route: 042
     Dates: start: 20060307, end: 20060307
  5. OMNISCAN [Suspect]
     Indication: NUCLEAR MAGNETIC RESONANCE IMAGING
  6. METOPROLOL TARTRATE [Concomitant]
  7. LISINOPRIL [Concomitant]
  8. VENOFER [Concomitant]
  9. MAGNEVIST [Suspect]
     Indication: NUCLEAR MAGNETIC RESONANCE IMAGING BRAIN
     Dosage: UNK, ONCE
     Route: 042
     Dates: start: 20030826, end: 20030826
  10. MAGNEVIST [Suspect]
     Dosage: 16 ML, ONCE
     Route: 042
     Dates: start: 20040928, end: 20040928
  11. MAGNEVIST [Suspect]
     Dosage: 15 ML, ONCE
     Route: 042
     Dates: start: 20060308, end: 20060308
  12. MULTIHANCE [Suspect]
     Indication: NUCLEAR MAGNETIC RESONANCE IMAGING
  13. EPOGEN [Concomitant]
  14. METHYLPREDNISOLONE [Concomitant]
  15. ZOCOR [Concomitant]
  16. MAGNEVIST [Suspect]
     Dosage: 14 ML, ONCE
     Route: 042
     Dates: start: 20051003, end: 20051003
  17. MAGNEVIST [Suspect]
     Dosage: 95 ML, UNK
     Dates: start: 20060307, end: 20060307
  18. OPTIMARK [Suspect]
     Indication: NUCLEAR MAGNETIC RESONANCE IMAGING
  19. PROHANCE [Suspect]
     Indication: NUCLEAR MAGNETIC RESONANCE IMAGING
  20. LIPITOR [Concomitant]
  21. DARBEPOETIN ALFA [Concomitant]
  22. MAGNEVIST [Suspect]
     Dosage: 16 ML, ONCE
     Route: 042
     Dates: start: 20050105, end: 20050105
  23. MYFORTIC [Concomitant]
  24. SENSIPAR [Concomitant]
  25. PREDNISONE [Concomitant]
  26. PROGRAF [Concomitant]
  27. LEVAQUIN [Concomitant]
  28. RENAPHRO [Concomitant]
  29. MAGNEVIST [Suspect]
     Indication: NUCLEAR MAGNETIC RESONANCE IMAGING
     Dosage: 20 ML, ONCE
     Route: 042
     Dates: start: 20010403, end: 20010403
  30. PHOSLO [Concomitant]
  31. RENAGEL [Concomitant]
  32. TOPROL-XL [Concomitant]
  33. NITROFURANTOIN [Concomitant]
  34. LASIX [Concomitant]
  35. VALCYTE [Concomitant]

REACTIONS (15)
  - MUSCLE TIGHTNESS [None]
  - EMOTIONAL DISTRESS [None]
  - SPINAL DEFORMITY [None]
  - NEPHROGENIC SYSTEMIC FIBROSIS [None]
  - SKIN HYPERTROPHY [None]
  - SKIN TIGHTNESS [None]
  - SKIN DISCOLOURATION [None]
  - JOINT RANGE OF MOTION DECREASED [None]
  - PAIN [None]
  - ANXIETY [None]
  - INJURY [None]
  - MOBILITY DECREASED [None]
  - JOINT STIFFNESS [None]
  - ANHEDONIA [None]
  - DEPRESSION [None]
